FAERS Safety Report 5105087-9 (Version None)
Quarter: 2006Q3

REPORT INFORMATION
  Report Type: 
  Country: None (occurrence: None)
  Receive Date: 20060911
  Receipt Date: 20060828
  Transmission Date: 20061208
  Serious: Yes (Other)
  Sender: FDA-Public Use
  Company Number: 06-NIP00128

PATIENT
  Age: 20 Year
  Sex: Male
  Weight: 68 kg

DRUGS (12)
  1. NIPENT [Suspect]
     Indication: GRAFT VERSUS HOST DISEASE
     Dosage: EVERY 3 WEEKS
     Dates: start: 20060406, end: 20060726
  2. PREDNISONE TAB [Concomitant]
  3. CYCLOSPORINE [Concomitant]
  4. VALGANCYCLOVIR [Concomitant]
  5. VORICONAZOLE (VORICONAZOLE) [Concomitant]
  6. PEN VK (PHENOXYMETHYLPENICILLIN POTASSIUM) [Concomitant]
  7. PEPCID [Concomitant]
  8. BACTRIM DS [Concomitant]
  9. INSULIN (INSULIN) [Concomitant]
  10. ACETAMINOPHEN [Concomitant]
  11. BENADRYL [Concomitant]
  12. SOLU-MEDROL [Concomitant]

REACTIONS (5)
  - ABDOMINAL PAIN [None]
  - EPSTEIN-BARR VIRUS INFECTION [None]
  - LYMPHOMA [None]
  - LYMPHOPROLIFERATIVE DISORDER [None]
  - NAUSEA [None]
